FAERS Safety Report 4526653-5 (Version None)
Quarter: 2004Q4

REPORT INFORMATION
  Report Type: 
  Country: None (occurrence: None)
  Receive Date: 20041214
  Receipt Date: 20040709
  Transmission Date: 20050328
  Serious: Yes (Death)
  Sender: FDA-Public Use
  Company Number: JP-GLAXOSMITHKLINE-B0339025A

PATIENT
  Age: 83 Year
  Sex: Male
  Weight: 41 kg

DRUGS (7)
  1. ZANTAC [Suspect]
     Indication: GASTRIC ULCER
     Dosage: 50MG PER DAY
     Route: 042
     Dates: start: 20040704
  2. MODACIN [Suspect]
     Indication: PNEUMONIA
     Dosage: 1G TWICE PER DAY
     Route: 042
     Dates: start: 20040703, end: 20040718
  3. ERYTHROCIN [Concomitant]
     Indication: PNEUMONIA ASPIRATION
     Dosage: 1500MG PER DAY
     Route: 042
     Dates: start: 20040703, end: 20040718
  4. SOLDEM 3A [Concomitant]
     Dosage: 1000ML PER DAY
     Route: 042
     Dates: start: 20040703, end: 20040712
  5. SUBVITAN N [Concomitant]
     Indication: HYPOVITAMINOSIS
     Dosage: 5ML PER DAY
     Dates: start: 20040703, end: 20040818
  6. DEXTROSE [Concomitant]
     Dosage: 300ML PER DAY
     Route: 042
     Dates: start: 20040703, end: 20040718
  7. SODIUM CHLORIDE SOLUTION [Concomitant]
     Dosage: 200ML PER DAY
     Route: 042
     Dates: start: 20040703, end: 20040718

REACTIONS (6)
  - CONVULSION [None]
  - CYANOSIS [None]
  - HEART RATE INCREASED [None]
  - MOUTH BREATHING [None]
  - MUSCLE TWITCHING [None]
  - PNEUMONIA ASPIRATION [None]
